FAERS Safety Report 10265047 (Version 1)
Quarter: 2014Q2

REPORT INFORMATION
  Report Type: Spontaneous
  Country: IT (occurrence: IT)
  Receive Date: 20140627
  Receipt Date: 20140627
  Transmission Date: 20141212
  Serious: Yes (Hospitalization)
  Sender: FDA-Public Use
  Company Number: IT-BAYER-2014-096293

PATIENT
  Age: 84 Year
  Sex: Female

DRUGS (9)
  1. CARDIOASPIRIN [Suspect]
     Dosage: DAILY DOSE 100 MG
     Route: 048
     Dates: start: 20130517, end: 20140517
  2. PLAVIX [Suspect]
     Dosage: DAILY DOSE 75 MG
     Route: 048
     Dates: start: 20130517, end: 20140517
  3. PANTOPRAZOLE SODIUM [Suspect]
     Dosage: DAILY DOSE 40 MG
     Route: 048
     Dates: start: 20130517, end: 20140517
  4. ALLOPURINOL [Suspect]
     Dosage: DAILY DOSE 150 MG
     Route: 048
     Dates: start: 20130517, end: 20140517
  5. COUMADIN [Suspect]
     Dosage: DAILY DOSE 5 MG
     Route: 048
     Dates: start: 20130517, end: 20140517
  6. BISOPROLOL FUMARATE [Concomitant]
  7. TRIATEC [Concomitant]
  8. LASIX [Concomitant]
  9. CARVASIN [Concomitant]

REACTIONS (4)
  - Epistaxis [Not Recovered/Not Resolved]
  - International normalised ratio increased [Not Recovered/Not Resolved]
  - Anaemia [Not Recovered/Not Resolved]
  - Labelled drug-drug interaction medication error [Not Recovered/Not Resolved]
